FAERS Safety Report 15699454 (Version 1)
Quarter: 2018Q4

REPORT INFORMATION
  Report Type: Spontaneous
  Country: US (occurrence: US)
  Receive Date: 20181126
  Receipt Date: 20181126
  Transmission Date: 20190205
  Serious: No
  Sender: FDA-Public Use
  Company Number: None

PATIENT
  Age: 26 Year
  Sex: Female

DRUGS (1)
  1. BOTOX [Suspect]
     Active Substance: ONABOTULINUMTOXINA
     Indication: HYPERHIDROSIS
     Dosage: INJECT 50MG SQ ^ONCE^ A MONTH UNITS PER AXILLA EVERY 3 MONTHS AS DIRECTED?
     Route: 058

REACTIONS (3)
  - Pregnancy [None]
  - Foetal heart rate abnormal [None]
  - Uterine dilation and curettage [None]
